FAERS Safety Report 4727014-6 (Version None)
Quarter: 2005Q3

REPORT INFORMATION
  Report Type: 
  Country: None (occurrence: None)
  Receive Date: 20050726
  Receipt Date: 20050726
  Transmission Date: 20060218
  Serious: Yes (Death, Disabling)
  Sender: FDA-Public Use
  Company Number: None

PATIENT
  Sex: Male

DRUGS (2)
  1. IBUPROFEN [Suspect]
     Indication: PYREXIA
     Dosage: 600 MG EVERY 6 HOURS ORAL
     Route: 048
     Dates: start: 20050527, end: 20050529
  2. TOBRAMYCIN [Suspect]
     Dosage: INTRAVENOU
     Route: 042
     Dates: start: 20050527, end: 20050529

REACTIONS (1)
  - RENAL FAILURE ACUTE [None]
